FAERS Safety Report 7603685-1 (Version None)
Quarter: 2011Q3

REPORT INFORMATION
  Report Type: 
  Country: None (occurrence: None)
  Receive Date: 20110712
  Receipt Date: 20110706
  Transmission Date: 20111222
  Serious: No
  Sender: FDA-Public Use
  Company Number: US-PFIZER INC-2011153220

PATIENT
  Sex: Male
  Weight: 99.773 kg

DRUGS (6)
  1. SERTRALINE HYDROCHLORIDE [Suspect]
     Indication: DEPRESSION
     Dosage: 100MG, DAILY
     Route: 048
     Dates: start: 19940101
  2. SERTRALINE HYDROCHLORIDE [Suspect]
     Dosage: 100MG, DAILY
     Route: 048
     Dates: start: 20110101
  3. BUPROPION HYDROCHLORIDE [Suspect]
     Dosage: 150MG, DAILY
     Route: 048
     Dates: start: 20110101, end: 20110705
  4. IMITREX [Concomitant]
     Indication: MIGRAINE
     Dosage: UNK
     Route: 048
  5. SERTRALINE HYDROCHLORIDE [Suspect]
     Dosage: 150MG, DAILY
     Route: 048
  6. BUPROPION HYDROCHLORIDE [Suspect]
     Indication: DEPRESSION
     Dosage: 100MG, DAILY
     Route: 048
     Dates: start: 20110101, end: 20110101

REACTIONS (2)
  - ENERGY INCREASED [None]
  - ABDOMINAL PAIN UPPER [None]
